FAERS Safety Report 8622062-8 (Version None)
Quarter: 2012Q3

REPORT INFORMATION
  Report Type: 
  Country: None (occurrence: None)
  Receive Date: 20120825
  Receipt Date: 20120820
  Transmission Date: 20120928
  Serious: Yes (Other)
  Sender: FDA-Public Use
  Company Number: US-ROCHE-1085856

PATIENT
  Sex: Male

DRUGS (3)
  1. RITUXAN [Suspect]
     Indication: RHEUMATOID ARTHRITIS
     Route: 042
     Dates: start: 20120801
  2. RITUXAN [Suspect]
     Route: 042
     Dates: start: 20120815
  3. ACTEMRA [Suspect]
     Indication: RHEUMATOID ARTHRITIS
     Route: 042
     Dates: start: 20120206

REACTIONS (4)
  - NO THERAPEUTIC RESPONSE [None]
  - ERYTHEMA [None]
  - OEDEMA PERIPHERAL [None]
  - DYSPNOEA [None]
